FAERS Safety Report 12990960 (Version 1)
Quarter: 2016Q4

REPORT INFORMATION
  Report Type: Spontaneous
  Country: US (occurrence: US)
  Receive Date: 20161201
  Receipt Date: 20161201
  Transmission Date: 20170207
  Serious: Yes (Other)
  Sender: FDA-Public Use
  Company Number: US-GILEAD-2016-0245681

PATIENT
  Sex: Female

DRUGS (3)
  1. SOVALDI [Suspect]
     Active Substance: SOFOSBUVIR
     Indication: CHRONIC HEPATITIS C
     Dosage: UNK
     Route: 048
     Dates: start: 2014
  2. CLIMARA [Concomitant]
     Active Substance: ESTRADIOL
     Indication: GENERAL SYMPTOM
  3. RIBAVIRIN. [Suspect]
     Active Substance: RIBAVIRIN
     Indication: CHRONIC HEPATITIS C
     Dosage: UNK
     Route: 048
     Dates: start: 2014

REACTIONS (9)
  - Unevaluable event [Unknown]
  - Hepatitis C [Unknown]
  - General physical health deterioration [Unknown]
  - Viral load increased [Unknown]
  - Autoimmune disorder [Unknown]
  - Malaise [Unknown]
  - Treatment failure [Unknown]
  - Bladder pain [Recovering/Resolving]
  - Drug ineffective [Unknown]
